FAERS Safety Report 21315330 (Version 1)
Quarter: 2022Q3

REPORT INFORMATION
  Report Type: Spontaneous
  Country: US (occurrence: None)
  Receive Date: 20220909
  Receipt Date: 20220909
  Transmission Date: 20221026
  Serious: No
  Sender: FDA-Public Use
  Company Number: US-ARIS GLOBAL-202111-2130

PATIENT
  Age: 66 Year
  Sex: Female

DRUGS (13)
  1. OXERVATE [Suspect]
     Active Substance: CENEGERMIN-BKBJ
     Indication: Neurotrophic keratopathy
     Route: 047
     Dates: start: 20211116
  2. MURO-128 [Concomitant]
  3. MINOCYCLINE HYDROCHLORIDE [Concomitant]
     Active Substance: MINOCYCLINE HYDROCHLORIDE
  4. DUPIXENT [Concomitant]
     Active Substance: DUPILUMAB
     Dosage: SYRINGE 200 MG/1
  5. BENADRYL [Concomitant]
     Active Substance: DIPHENHYDRAMINE HYDROCHLORIDE
  6. OMEPRAZOLE\SODIUM BICARBONATE [Concomitant]
     Active Substance: OMEPRAZOLE\SODIUM BICARBONATE
  7. SIMVASTATIN [Concomitant]
     Active Substance: SIMVASTATIN
  8. PREDNISONE [Concomitant]
     Active Substance: PREDNISONE
  9. POTASSIUM CHLORIDE-NACL [Concomitant]
  10. NAPROXEN [Concomitant]
     Active Substance: NAPROXEN
  11. FLUNISOLIDE [Concomitant]
     Active Substance: FLUNISOLIDE
     Dosage: SPRAY
  12. ALBUTEROL SULFATE [Concomitant]
     Active Substance: ALBUTEROL SULFATE
  13. REFRESH CLASSIC [Concomitant]
     Active Substance: POLYVINYL ALCOHOL\POVIDONE

REACTIONS (4)
  - Photophobia [Unknown]
  - Eye pain [Unknown]
  - Eye ulcer [Unknown]
  - Hordeolum [Unknown]

NARRATIVE: CASE EVENT DATE: 20211116
